FAERS Safety Report 7922571-0 (Version None)
Quarter: 2011Q4

REPORT INFORMATION
  Report Type: 
  Country: None (occurrence: None)
  Receive Date: 20111117
  Receipt Date: 20110105
  Transmission Date: 20120403
  Serious: No
  Sender: FDA-Public Use
  Company Number: US-ALLERGAN-1014992US

PATIENT
  Age: 77 Year
  Sex: Female
  Weight: 63.492 kg

DRUGS (2)
  1. XALATAN [Concomitant]
     Indication: GLAUCOMA
     Dosage: 1 GTT, QHS
     Route: 047
  2. COMBIGAN [Suspect]
     Indication: GLAUCOMA
     Dosage: 1 GTT, BID
     Route: 047
     Dates: start: 20100301, end: 20101101

REACTIONS (4)
  - EYELID SENSORY DISORDER [None]
  - OCULAR HYPERAEMIA [None]
  - EYE IRRITATION [None]
  - ERYTHEMA OF EYELID [None]
